FAERS Safety Report 9643925 (Version 1)
Quarter: 2013Q4

REPORT INFORMATION
  Report Type: Spontaneous
  Country: DZ (occurrence: DZ)
  Receive Date: 20131024
  Receipt Date: 20131024
  Transmission Date: 20140711
  Serious: Yes (Other)
  Sender: FDA-Public Use
  Company Number: PHHY2013DZ117435

PATIENT
  Age: 55 Year
  Sex: 0

DRUGS (2)
  1. RIBAVIRIN [Suspect]
     Indication: HEPATITIS C
     Dosage: 800 MG, PER DAY
  2. PEGASYS [Suspect]
     Indication: HEPATITIS C
     Dosage: 180 UG, WEEKLY
     Route: 058

REACTIONS (1)
  - Psoriasis [Recovering/Resolving]
